FAERS Safety Report 6322925-2 (Version None)
Quarter: 2009Q3

REPORT INFORMATION
  Report Type: 
  Country: None (occurrence: None)
  Receive Date: 20090824
  Receipt Date: 20090220
  Transmission Date: 20100115
  Serious: No
  Sender: FDA-Public Use
  Company Number: US-ABBOTT-09P-163-0558599-00

PATIENT
  Sex: Male

DRUGS (2)
  1. NIASPAN [Suspect]
     Indication: LOW DENSITY LIPOPROTEIN INCREASED
     Dates: start: 20090209
  2. NEXIUM [Concomitant]
     Indication: OESOPHAGEAL ULCER

REACTIONS (2)
  - ERYTHEMA [None]
  - FLUSHING [None]
